FAERS Safety Report 7097878-2 (Version None)
Quarter: 2010Q4

REPORT INFORMATION
  Report Type: 
  Country: None (occurrence: None)
  Receive Date: 20101103
  Receipt Date: 20101019
  Transmission Date: 20110411
  Serious: Yes (Hospitalization, Other)
  Sender: FDA-Public Use
  Company Number: 020009

PATIENT
  Sex: Female
  Weight: 56 kg

DRUGS (5)
  1. CIMZIA [Suspect]
     Indication: POLYARTHRITIS
     Dosage: (200 MG 1X/2 WEEKS SUBCUTANEOUS)
     Route: 058
     Dates: start: 20100501, end: 20100901
  2. CIMZIA [Suspect]
     Indication: RHEUMATOID ARTHRITIS
     Dosage: (200 MG 1X/2 WEEKS SUBCUTANEOUS)
     Route: 058
     Dates: start: 20100501, end: 20100901
  3. SYMPAL [Concomitant]
  4. MAALOXAN /00091001/ [Concomitant]
  5. NEXIUM [Concomitant]

REACTIONS (6)
  - ARTHRITIS [None]
  - ASTHENIA [None]
  - BLOOD CREATINE PHOSPHOKINASE INCREASED [None]
  - CONDITION AGGRAVATED [None]
  - MUSCULAR WEAKNESS [None]
  - MYALGIA [None]
